FAERS Safety Report 4873668-3 (Version None)
Quarter: 2006Q1

REPORT INFORMATION
  Report Type: 
  Country: None (occurrence: None)
  Receive Date: 20060103
  Receipt Date: 20060103
  Transmission Date: 20060701
  Serious: Yes (Other)
  Sender: FDA-Public Use
  Company Number: None

PATIENT
  Sex: Female
  Weight: 77.1115 kg

DRUGS (1)
  1. LAMICTAL [Suspect]
     Indication: BIPOLAR II DISORDER
     Dosage: PER TITRATION SCHEDULE
     Dates: start: 20050801, end: 20051129

REACTIONS (4)
  - DEPRESSION [None]
  - ERYTHEMA [None]
  - IRRITABILITY [None]
  - RASH [None]
